FAERS Safety Report 25225438 (Version 1)
Quarter: 2025Q2

REPORT INFORMATION
  Report Type: Spontaneous
  Country: US (occurrence: US)
  Receive Date: 20250422
  Receipt Date: 20250422
  Transmission Date: 20250717
  Serious: No
  Sender: LYNE LABORATORIES
  Company Number: US-Lyne Laboratories Inc.-2175356

PATIENT
  Sex: Male

DRUGS (5)
  1. NYSTATIN [Suspect]
     Active Substance: NYSTATIN
     Indication: Rash
  2. DIFLUCAN [Concomitant]
     Active Substance: FLUCONAZOLE
  3. HYDROCORTISONE [Concomitant]
     Active Substance: HYDROCORTISONE
  4. LOTRIMIN [Concomitant]
  5. MONISTAT 3 [Concomitant]
     Active Substance: MICONAZOLE NITRATE

REACTIONS (1)
  - Drug ineffective [Unknown]
